FAERS Safety Report 20459735 (Version 1)
Quarter: 2022Q1

REPORT INFORMATION
  Report Type: Other
  Country: CA (occurrence: None)
  Receive Date: 20220211
  Receipt Date: 20220211
  Transmission Date: 20220423
  Serious: Yes (Other)
  Sender: FDA-Public Use
  Company Number: CA-ROCHE-2883645

PATIENT
  Age: 39 Year
  Sex: Female

DRUGS (8)
  1. RITUXAN [Suspect]
     Active Substance: RITUXIMAB
     Indication: Rheumatoid arthritis
     Route: 042
     Dates: start: 20190807
  2. BENADRYL [Concomitant]
     Active Substance: DIPHENHYDRAMINE HYDROCHLORIDE
     Route: 048
     Dates: start: 20200325
  3. CALCIUM [Concomitant]
     Active Substance: CALCIUM
  4. CORTISONE [Concomitant]
     Active Substance: CORTISONE
     Indication: Arthralgia
     Dosage: ALTERNATE 5MG WITH 10MG DAILY
     Dates: start: 2019
  5. HERBALS\TURMERIC [Concomitant]
     Active Substance: HERBALS\TURMERIC
  6. PREDNISONE [Concomitant]
     Active Substance: PREDNISONE
  7. TYLENOL [Concomitant]
     Active Substance: ACETAMINOPHEN
     Indication: Premedication
     Route: 048
     Dates: start: 20190822, end: 20190822
  8. TYLENOL [Concomitant]
     Active Substance: ACETAMINOPHEN
     Route: 048
     Dates: start: 20200325

REACTIONS (8)
  - Haemorrhage [Recovered/Resolved]
  - SARS-CoV-2 test positive [Unknown]
  - Headache [Recovered/Resolved]
  - Oropharyngeal pain [Unknown]
  - Subdural haematoma [Recovered/Resolved]
  - Hypoaesthesia [Recovered/Resolved]
  - Vision blurred [Recovered/Resolved]
  - Blood pressure diastolic abnormal [Unknown]

NARRATIVE: CASE EVENT DATE: 20210722
